FAERS Safety Report 5137578-9 (Version None)
Quarter: 2006Q4

REPORT INFORMATION
  Report Type: 
  Country: None (occurrence: None)
  Receive Date: 20061030
  Receipt Date: 20051121
  Transmission Date: 20070319
  Serious: No
  Sender: FDA-Public Use
  Company Number: US-GLAXOSMITHKLINE-A0583493A

PATIENT
  Age: 30 Year
  Sex: Female

DRUGS (5)
  1. ADVAIR HFA [Suspect]
     Indication: ASTHMA
     Dosage: 1BLS TWICE PER DAY
     Route: 055
     Dates: start: 20041001
  2. ALBUTEROL [Concomitant]
     Route: 065
  3. KLONOPIN [Concomitant]
  4. ORTHO TRI-CYCLEN LO [Concomitant]
  5. PSEUDOEPHEDRINE [Concomitant]

REACTIONS (1)
  - DYSPHONIA [None]
